FAERS Safety Report 9157542 (Version 1)
Quarter: 2013Q1

REPORT INFORMATION
  Report Type: Spontaneous
  Country: US (occurrence: None)
  Receive Date: 20130311
  Receipt Date: 20130311
  Transmission Date: 20140127
  Serious: Yes (Hospitalization)
  Sender: FDA-Public Use
  Company Number: None

PATIENT
  Age: 63 Year
  Sex: Female
  Weight: 70.9 kg

DRUGS (15)
  1. PREDNISONE [Suspect]
     Indication: RHEUMATOID ARTHRITIS
     Dosage: CHRONIC USE 5 MG BID, PO
     Route: 048
  2. ARTHROTEC [Suspect]
     Indication: RHEUMATOID ARTHRITIS
     Dosage: CHRONIC USE 75/200MG BID PO
     Route: 048
  3. ENBREL [Concomitant]
  4. MULTIVITAMN [Concomitant]
  5. NEXIUM [Concomitant]
  6. SYNTHROID [Concomitant]
  7. VITAMIN D3 [Concomitant]
  8. PREDNISONE [Concomitant]
  9. BENICAR [Concomitant]
  10. AMLODIPINE [Concomitant]
  11. PRAVASTATIN [Concomitant]
  12. CYCLOBENZAPRINE [Concomitant]
  13. PERCOCET [Concomitant]
  14. ARTHROTEC [Concomitant]
  15. ALENDRONATE [Concomitant]

REACTIONS (3)
  - Dizziness [None]
  - Haemoglobin decreased [None]
  - Upper gastrointestinal haemorrhage [None]
